FAERS Safety Report 8067348-3 (Version None)
Quarter: 2012Q1

REPORT INFORMATION
  Report Type: 
  Country: None (occurrence: None)
  Receive Date: 20120124
  Receipt Date: 20120119
  Transmission Date: 20120608
  Serious: Yes (Hospitalization)
  Sender: FDA-Public Use
  Company Number: ES-GLAXOSMITHKLINE-B0777111A

PATIENT
  Age: 76 Year
  Sex: Male

DRUGS (3)
  1. UNKNOWN MEDICATION [Concomitant]
     Indication: DYSLIPIDAEMIA
  2. VOTRIENT [Suspect]
     Indication: RENAL CANCER
     Dosage: 800MG PER DAY
     Route: 048
     Dates: start: 20111001, end: 20111223
  3. ELIGARD [Concomitant]
     Indication: PROSTATE CANCER

REACTIONS (4)
  - POSTERIOR REVERSIBLE ENCEPHALOPATHY SYNDROME [None]
  - DYSARTHRIA [None]
  - HYPERTENSIVE CRISIS [None]
  - DEMENTIA [None]
